FAERS Safety Report 11814858 (Version 1)
Quarter: 2015Q4

REPORT INFORMATION
  Report Type: Spontaneous
  Country: US (occurrence: US)
  Receive Date: 20151209
  Receipt Date: 20151209
  Transmission Date: 20160305
  Serious: No
  Sender: FDA-Public Use
  Company Number: US-SA-2015SA133244

PATIENT
  Age: 59 Year
  Sex: Female

DRUGS (5)
  1. TOUJEO [Suspect]
     Active Substance: INSULIN GLARGINE
     Indication: TYPE 2 DIABETES MELLITUS
     Dosage: DOSE:11 UNIT(S)
     Route: 065
     Dates: start: 20150827
  2. NOVOLOG [Concomitant]
     Active Substance: INSULIN ASPART
  3. SOLOSTAR [Suspect]
     Active Substance: DEVICE
     Indication: TYPE 2 DIABETES MELLITUS
     Dates: start: 20150827
  4. LANTUS SOLOSTAR [Concomitant]
     Active Substance: INSULIN GLARGINE
     Dosage: DOSE:11 UNIT(S)
     Dates: start: 2011, end: 2015
  5. SOLOSTAR [Concomitant]
     Active Substance: DEVICE
     Dates: start: 2011, end: 2015

REACTIONS (2)
  - Panic reaction [Not Recovered/Not Resolved]
  - Blood glucose increased [Not Recovered/Not Resolved]

NARRATIVE: CASE EVENT DATE: 20150828
